FAERS Safety Report 10426434 (Version 7)
Quarter: 2020Q2

REPORT INFORMATION
  Report Type: Spontaneous
  Country: US (occurrence: US)
  Receive Date: 20140903
  Receipt Date: 20200629
  Transmission Date: 20200713
  Serious: Yes (Other)
  Sender: FDA-Public Use
  Company Number: US-PFIZER INC-2014244999

PATIENT
  Age: 63 Year
  Sex: Female
  Weight: 122.45 kg

DRUGS (2)
  1. LYRICA [Suspect]
     Active Substance: PREGABALIN
     Indication: FIBROMYALGIA
     Dosage: 400 MG, 3X/DAY (1 AM, 1 AFTERNOON, 2 BEDTIME)
     Dates: start: 2014
  2. LYRICA [Suspect]
     Active Substance: PREGABALIN
     Indication: PERIPHERAL NERVE INJURY
     Dosage: 400 MG, 3X/DAY (1 IN MORNING, 1 AFTERNOON, 2 AT BEDTIME)
     Dates: end: 2012

REACTIONS (6)
  - Malaise [Recovering/Resolving]
  - Sinusitis [Recovered/Resolved]
  - Oropharyngeal pain [Recovered/Resolved]
  - Drug dependence [Recovered/Resolved]
  - Prescribed overdose [Recovered/Resolved]
  - Ear infection [Recovered/Resolved]
